FAERS Safety Report 15598637 (Version 3)
Quarter: 2018Q4

REPORT INFORMATION
  Report Type: Spontaneous
  Country: JP (occurrence: JP)
  Receive Date: 20181108
  Receipt Date: 20181130
  Transmission Date: 20190205
  Serious: Yes (Other)
  Sender: FDA-Public Use
  Company Number: JP-BAYER-2018-207280

PATIENT
  Age: 36 Year
  Sex: Female

DRUGS (5)
  1. ADEMPAS [Suspect]
     Active Substance: RIOCIGUAT
     Indication: PULMONARY HYPERTENSION
     Dosage: 7.5MG
     Route: 048
  2. TREPROST [Suspect]
     Active Substance: TREPROSTINIL
     Indication: PULMONARY HYPERTENSION
     Dosage: 102NG/KG/MIN
     Route: 058
  3. TREPROST [Suspect]
     Active Substance: TREPROSTINIL
     Indication: PULMONARY HYPERTENSION
     Dosage: UNK
     Route: 041
  4. MACITENTAN [Concomitant]
     Active Substance: MACITENTAN
     Indication: PULMONARY HYPERTENSION
     Dosage: 10MG
  5. FLORENT [Suspect]
     Active Substance: SACCHAROMYCES CEREVISIAE
     Indication: PULMONARY HYPERTENSION
     Dosage: 64NG/KG/MIN
     Route: 041

REACTIONS (1)
  - Gastroenteritis [Recovered/Resolved]

NARRATIVE: CASE EVENT DATE: 201710
